FAERS Safety Report 4394871-5 (Version None)
Quarter: 2004Q3

REPORT INFORMATION
  Report Type: 
  Country: None (occurrence: None)
  Receive Date: 20040706
  Receipt Date: 20040622
  Transmission Date: 20050211
  Serious: Yes (Hospitalization, Other)
  Sender: FDA-Public Use
  Company Number: 2004042384

PATIENT
  Age: 9 Year
  Sex: Female

DRUGS (3)
  1. HYDROXYZINE HCL [Suspect]
     Indication: PRURITUS
     Dosage: 12.5 MG (12.5 MG, NIGHTLY), ORAL
     Route: 048
  2. SALBUTAMOL SULFATE (SALBUTAMOL SULFATE) [Suspect]
     Indication: ASTHMA
     Dosage: AS NEEDED
  3. ALL OTHER THERAPEUTIC PRODUCTS (ALL OTHER THERAPEUTIC PRODUCTS) [Concomitant]

REACTIONS (13)
  - ATRIOVENTRICULAR BLOCK FIRST DEGREE [None]
  - BLOOD PRESSURE IMMEASURABLE [None]
  - CHEST DISCOMFORT [None]
  - CHEST PAIN [None]
  - EOSINOPHILIA [None]
  - HYPERHIDROSIS [None]
  - PALPITATIONS [None]
  - PERIPHERAL COLDNESS [None]
  - PRURITUS ANI [None]
  - PULSE PRESSURE DECREASED [None]
  - SUPRAVENTRICULAR TACHYCARDIA [None]
  - THERAPY NON-RESPONDER [None]
  - URTICARIA [None]
